FAERS Safety Report 5430565-2 (Version None)
Quarter: 2007Q3

REPORT INFORMATION
  Report Type: 
  Country: None (occurrence: None)
  Receive Date: 20070830
  Receipt Date: 20070726
  Transmission Date: 20080115
  Serious: No
  Sender: FDA-Public Use
  Company Number: A0666546A

PATIENT
  Age: 55 Year
  Sex: Female

DRUGS (4)
  1. WELLBUTRIN XL [Suspect]
     Indication: DEPRESSION
     Dosage: 300MG PER DAY
     Route: 048
     Dates: end: 20070705
  2. KLONOPIN [Concomitant]
  3. PERCOCET [Concomitant]
  4. METHADONE HCL [Concomitant]

REACTIONS (4)
  - ANGER [None]
  - ERYTHEMA [None]
  - IRRITABILITY [None]
  - SWELLING [None]
